FAERS Safety Report 17493483 (Version 1)
Quarter: 2020Q1

REPORT INFORMATION
  Report Type: Spontaneous
  Country: US (occurrence: US)
  Receive Date: 20200303
  Receipt Date: 20200303
  Transmission Date: 20200409
  Serious: No
  Sender: FDA-Public Use
  Company Number: US-AMNEAL PHARMACEUTICALS-2019-IPXL-00871

PATIENT
  Sex: Male

DRUGS (2)
  1. RYTARY [Suspect]
     Active Substance: CARBIDOPA\LEVODOPA
     Dosage: 12 DOSAGE FORM, DAILY (12 PILLS A DAY INSTEAD OF 18 PILLS A DAY)
     Route: 048
  2. RYTARY [Suspect]
     Active Substance: CARBIDOPA\LEVODOPA
     Indication: PARKINSON^S DISEASE
     Dosage: 3 DOSAGE FORM, 6 /DAY (3 CAPSULES 6 TIMES A DAY)
     Route: 048

REACTIONS (3)
  - Prescribed overdose [Unknown]
  - Therapy cessation [Unknown]
  - Adverse event [Recovered/Resolved]
